FAERS Safety Report 6104507-0 (Version None)
Quarter: 2009Q1

REPORT INFORMATION
  Report Type: 
  Country: None (occurrence: None)
  Receive Date: 20090305
  Receipt Date: 20081107
  Transmission Date: 20090719
  Serious: Yes (Disabling)
  Sender: FDA-Public Use
  Company Number: ES-B.I. PHARMACEUTICALS,INC./RIDGEFIELD-2009-BP-02637YA

PATIENT
  Age: 74 Year
  Sex: Male
  Weight: 70 kg

DRUGS (8)
  1. OMNIC CAPSULES [Suspect]
     Indication: BENIGN PROSTATIC HYPERPLASIA
     Dates: start: 20070101
  2. OMNIC CAPSULES [Suspect]
     Route: 048
     Dates: start: 20060101
  3. ASPIRIN [Concomitant]
  4. HYDREA [Concomitant]
  5. RANITEC (RANITIDINE HYDROCHLORIE) [Concomitant]
  6. PARIZAC (OMEPRAZOLE SODIUM) [Concomitant]
  7. BISOPROLOL (BISOPROLOL HEMIFUMARATE) [Concomitant]
  8. SIMVASTATINA (SIMVASTATIN) [Concomitant]

REACTIONS (2)
  - ABDOMINAL RIGIDITY [None]
  - URINARY INCONTINENCE [None]
